FAERS Safety Report 24778311 (Version 1)
Quarter: 2024Q4

REPORT INFORMATION
  Report Type: Spontaneous
  Country: US (occurrence: US)
  Receive Date: 20241226
  Receipt Date: 20241226
  Transmission Date: 20250114
  Serious: No
  Sender: ROCHE
  Company Number: US-ROCHE-10000163947

PATIENT
  Sex: Female

DRUGS (6)
  1. XOLAIR [Suspect]
     Active Substance: OMALIZUMAB
     Indication: Dermatitis atopic
     Dosage: NEVER FILLED
     Route: 065
  2. BJUVA CAP 0.5-100MG [Concomitant]
     Dosage: 0.5-100MG
  3. AMLODIPINE [Concomitant]
     Active Substance: AMLODIPINE BESYLATE
     Dosage: 8 TAB
  4. NP THYROID [Concomitant]
     Active Substance: LEVOTHYROXINE\LIOTHYRONINE
  5. ONDANSETRON [Concomitant]
     Active Substance: ONDANSETRON
     Dosage: TBD
  6. VEOZAH [Concomitant]
     Active Substance: FEZOLINETANT

REACTIONS (2)
  - Off label use [Unknown]
  - Depression [Not Recovered/Not Resolved]
